APPROVED DRUG PRODUCT: PALLADONE
Active Ingredient: HYDROMORPHONE HYDROCHLORIDE
Strength: 32MG
Dosage Form/Route: CAPSULE, EXTENDED RELEASE;ORAL
Application: N021044 | Product #004
Applicant: PURDUE PHARMA LP
Approved: Sep 24, 2004 | RLD: No | RS: No | Type: DISCN